FAERS Safety Report 23007676 (Version 5)
Quarter: 2024Q3

REPORT INFORMATION
  Report Type: Report from Study
  Country: US (occurrence: US)
  Receive Date: 20230929
  Receipt Date: 20240926
  Transmission Date: 20241017
  Serious: Yes (Other)
  Sender: GLAXOSMITHKLINE
  Company Number: US-GLAXOSMITHKLINE-US2023AMR131229

PATIENT

DRUGS (1)
  1. NIRAPARIB [Suspect]
     Active Substance: NIRAPARIB
     Indication: Ovarian cancer
     Dosage: 200 MG, QD
     Dates: start: 20230830

REACTIONS (4)
  - Kidney infection [Not Recovered/Not Resolved]
  - Hypertension [Recovering/Resolving]
  - Blood test abnormal [Not Recovered/Not Resolved]
  - Skin discolouration [Recovered/Resolved]
